FAERS Safety Report 9765160 (Version 1)
Quarter: 2013Q4

REPORT INFORMATION
  Report Type: Spontaneous
  Country: US (occurrence: US)
  Receive Date: 20131217
  Receipt Date: 20131217
  Transmission Date: 20140711
  Serious: No
  Sender: FDA-Public Use
  Company Number: US-GLAXOSMITHKLINE-A1009774A

PATIENT
  Age: 54 Year
  Sex: Female

DRUGS (1)
  1. SORIATANE [Suspect]
     Indication: SQUAMOUS CELL CARCINOMA

REACTIONS (2)
  - Headache [Unknown]
  - Therapeutic response unexpected [Unknown]
